FAERS Safety Report 20992408 (Version 3)
Quarter: 2022Q3

REPORT INFORMATION
  Report Type: Spontaneous
  Country: IT (occurrence: None)
  Receive Date: 20220622
  Receipt Date: 20220707
  Transmission Date: 20221027
  Serious: Yes (Other)
  Sender: FDA-Public Use
  Company Number: 2022A213328

PATIENT
  Age: 25 Year
  Sex: Female

DRUGS (7)
  1. OMEPRAZOLE [Suspect]
     Active Substance: OMEPRAZOLE
     Route: 065
     Dates: start: 20220101, end: 20220528
  2. ADEMETIONINE [Suspect]
     Active Substance: ADEMETIONINE
     Route: 065
     Dates: start: 20220101, end: 20220528
  3. CLOZAPINE [Suspect]
     Active Substance: CLOZAPINE
     Route: 065
     Dates: start: 20220101, end: 20220528
  4. XANAX [Suspect]
     Active Substance: ALPRAZOLAM
     Route: 065
     Dates: start: 20220101, end: 20220528
  5. LITHIUM CARBONATE [Suspect]
     Active Substance: LITHIUM CARBONATE
     Route: 065
     Dates: start: 20220101, end: 20220528
  6. DIAZEPAM [Suspect]
     Active Substance: DIAZEPAM
     Route: 065
     Dates: start: 20220101, end: 20220528
  7. NEURONTIN [Suspect]
     Active Substance: GABAPENTIN
     Route: 065
     Dates: start: 20220101, end: 20220528

REACTIONS (2)
  - Faecaloma [Recovering/Resolving]
  - Abdominal pain [Recovering/Resolving]

NARRATIVE: CASE EVENT DATE: 20220528
